FAERS Safety Report 5780364-7 (Version None)
Quarter: 2008Q2

REPORT INFORMATION
  Report Type: 
  Country: None (occurrence: None)
  Receive Date: 20080620
  Receipt Date: 20080618
  Transmission Date: 20081010
  Serious: Yes (Other)
  Sender: FDA-Public Use
  Company Number: B0525826A

PATIENT
  Age: 3 Year
  Sex: Female

DRUGS (2)
  1. CLENIL [Suspect]
     Indication: ASTHMA
     Dosage: 2PUFF TWICE PER DAY
     Route: 055
     Dates: start: 20071224
  2. VENTOLIN [Concomitant]
     Indication: ASTHMA
     Route: 055
     Dates: start: 20071126

REACTIONS (3)
  - COUGH [None]
  - DRUG INEFFECTIVE [None]
  - INSOMNIA [None]
